FAERS Safety Report 5765381-5 (Version None)
Quarter: 2008Q2

REPORT INFORMATION
  Report Type: 
  Country: None (occurrence: None)
  Receive Date: 20080611
  Receipt Date: 20080529
  Transmission Date: 20081010
  Serious: Yes (Other)
  Sender: FDA-Public Use
  Company Number: US-ELI_LILLY_AND_COMPANY-US200805006040

PATIENT
  Sex: Female

DRUGS (1)
  1. EVISTA [Suspect]
     Indication: PROPHYLAXIS
     Dosage: 60 MG, UNK
     Dates: start: 19980101, end: 20050101

REACTIONS (4)
  - BREAST MASS [None]
  - DIARRHOEA [None]
  - HAEMANGIOMA OF RETINA [None]
  - HOT FLUSH [None]
